FAERS Safety Report 8076634-2 (Version None)
Quarter: 2012Q1

REPORT INFORMATION
  Report Type: 
  Country: None (occurrence: None)
  Receive Date: 20120127
  Receipt Date: 20120119
  Transmission Date: 20120608
  Serious: Yes (Hospitalization)
  Sender: FDA-Public Use
  Company Number: PHHY2012GB004886

PATIENT
  Age: 71 Year
  Sex: Female

DRUGS (6)
  1. DIGOXIN [Concomitant]
     Dosage: 125 UG, QD
     Route: 048
  2. LEFLUNOMIDE [Suspect]
     Dosage: 20 MG, QD
     Route: 048
  3. PREDNISOLONE [Concomitant]
     Dosage: 10 MG, QD
     Route: 048
  4. FERROUS SULFATE TAB [Concomitant]
     Dosage: 200 MG, BID
     Route: 048
  5. CHANTIX [Suspect]
     Dates: start: 20120106
  6. WARFARIN SODIUM [Concomitant]

REACTIONS (3)
  - JAUNDICE [None]
  - HEPATOTOXICITY [None]
  - INTERNATIONAL NORMALISED RATIO INCREASED [None]
